FAERS Safety Report 6020094-X (Version None)
Quarter: 2008Q4

REPORT INFORMATION
  Report Type: 
  Country: None (occurrence: None)
  Receive Date: 20081226
  Receipt Date: 20081219
  Transmission Date: 20090506
  Serious: Yes (Other)
  Sender: FDA-Public Use
  Company Number: US-BAYER-200840703NA

PATIENT
  Sex: Male

DRUGS (2)
  1. AVELOX [Suspect]
     Indication: DRUG USE FOR UNKNOWN INDICATION
  2. ZITHROMAX [Suspect]

REACTIONS (1)
  - STEVENS-JOHNSON SYNDROME [None]
